FAERS Safety Report 24383039 (Version 1)
Quarter: 2024Q4

REPORT INFORMATION
  Report Type: Spontaneous
  Country: US (occurrence: US)
  Receive Date: 20241001
  Receipt Date: 20241001
  Transmission Date: 20250115
  Serious: Yes (Life-Threatening, Other)
  Sender: PFIZER
  Company Number: US-PFIZER INC-PV202400126699

PATIENT
  Age: 62 Year
  Sex: Male

DRUGS (6)
  1. CLINDAMYCIN HYDROCHLORIDE [Suspect]
     Active Substance: CLINDAMYCIN HYDROCHLORIDE
     Indication: Toxic shock syndrome
     Dosage: UNK
  2. CLINDAMYCIN HYDROCHLORIDE [Suspect]
     Active Substance: CLINDAMYCIN HYDROCHLORIDE
     Indication: Pneumonia pneumococcal
  3. PHENETICILLIN [Suspect]
     Active Substance: PHENETICILLIN
     Indication: Pneumonia staphylococcal
     Dosage: UNK
  4. PHENETICILLIN [Suspect]
     Active Substance: PHENETICILLIN
     Indication: Toxic shock syndrome streptococcal
  5. HUMAN IMMUNOGLOBULIN G [Suspect]
     Active Substance: HUMAN IMMUNOGLOBULIN G
     Indication: Pneumonia staphylococcal
     Dosage: UNK
     Route: 042
  6. HUMAN IMMUNOGLOBULIN G [Suspect]
     Active Substance: HUMAN IMMUNOGLOBULIN G
     Indication: Toxic shock syndrome streptococcal

REACTIONS (1)
  - Drug ineffective [Unknown]
